FAERS Safety Report 9057383 (Version 1)
Quarter: 2013Q1

REPORT INFORMATION
  Report Type: Spontaneous
  Country: US (occurrence: US)
  Receive Date: 20130204
  Receipt Date: 20130204
  Transmission Date: 20140127
  Serious: Yes (Death)
  Sender: FDA-Public Use
  Company Number: US-MYLANLABS-2013S1001947

PATIENT
  Age: 39 Year
  Sex: Male

DRUGS (1)
  1. CYSTAGON CAPSULES [Suspect]
     Indication: AMINO ACID METABOLISM DISORDER
     Route: 048
     Dates: start: 20020205, end: 20130120

REACTIONS (2)
  - Cardiac failure [Fatal]
  - Pulmonary oedema [Fatal]
